FAERS Safety Report 7375412-7 (Version None)
Quarter: 2011Q1

REPORT INFORMATION
  Report Type: 
  Country: None (occurrence: None)
  Receive Date: 20110325
  Receipt Date: 20110204
  Transmission Date: 20110831
  Serious: Yes (Other)
  Sender: FDA-Public Use
  Company Number: PHHY2011US11457

PATIENT
  Sex: Female

DRUGS (5)
  1. EXTAVIA [Suspect]
     Dosage: 0.187 MG, QOD
     Route: 058
     Dates: start: 20110114
  2. EXTAVIA [Suspect]
     Indication: MULTIPLE SCLEROSIS
     Dosage: 0.062 MG, QOD
     Route: 058
     Dates: start: 20110107
  3. ATENOLOL [Concomitant]
     Dosage: 25 MG, DAILY
     Route: 048
  4. NEURONTIN [Concomitant]
     Dosage: 300 MG, BID
     Route: 048
  5. LEVOXYL [Concomitant]
     Dosage: 100 MG DAILY

REACTIONS (4)
  - ANXIETY [None]
  - HERPES ZOSTER [None]
  - INJECTION SITE ERYTHEMA [None]
  - PANIC ATTACK [None]
